FAERS Safety Report 10161700 (Version 1)
Quarter: 2014Q2

REPORT INFORMATION
  Report Type: Spontaneous
  Country: US (occurrence: None)
  Receive Date: 20140507
  Receipt Date: 20140507
  Transmission Date: 20141212
  Serious: Yes (Death, Hospitalization, Other)
  Sender: FDA-Public Use
  Company Number: AUR-APL-2014-05209

PATIENT
  Age: 7 Year
  Sex: Male

DRUGS (5)
  1. CEFTRIAXONE (CEFTRIAXONE) [Suspect]
     Indication: PRODUCT USED FOR UNKNOWN INDICATION
     Route: 042
     Dates: start: 2010
  2. FENRETINIDE [Suspect]
     Indication: PRODUCT USED FOR UNKNOWN INDICATION
     Dosage: 1110 MG/M2/DAY, INTRAVENOUS
     Route: 042
     Dates: start: 201002
  3. ACETAMINOPHEN (PARACETAMOL) [Suspect]
     Indication: PYREXIA
     Dates: start: 2010
  4. ONDANSETRON (ONDANSETRON) [Concomitant]
  5. MONTELUKAST (MONTELUKAST) [Concomitant]

REACTIONS (27)
  - Pyrexia [None]
  - Abdominal pain [None]
  - Constipation [None]
  - Headache [None]
  - Dehydration [None]
  - Benign intracranial hypertension [None]
  - Abdominal distension [None]
  - Epistaxis [None]
  - Mental status changes [None]
  - Hepatomegaly [None]
  - Periportal oedema [None]
  - Pleural effusion [None]
  - Atelectasis [None]
  - Hepatic failure [None]
  - Rash erythematous [None]
  - Rash macular [None]
  - Skin exfoliation [None]
  - Mucosal haemorrhage [None]
  - Hepatocellular injury [None]
  - Intra-abdominal haemorrhage [None]
  - Hepatic haemorrhage [None]
  - Hepatic necrosis [None]
  - Blister [None]
  - Muscle necrosis [None]
  - Circulatory collapse [None]
  - Drug-induced liver injury [None]
  - Capillary leak syndrome [None]
